FAERS Safety Report 4678271-6 (Version None)
Quarter: 2005Q2

REPORT INFORMATION
  Report Type: 
  Country: None (occurrence: None)
  Receive Date: 20050601
  Receipt Date: 20050523
  Transmission Date: 20051028
  Serious: Yes (Hospitalization)
  Sender: FDA-Public Use
  Company Number: 200511335EU

PATIENT
  Age: 66 Year
  Sex: Female

DRUGS (7)
  1. ARAVA [Suspect]
     Indication: RHEUMATOID ARTHRITIS
     Route: 048
     Dates: start: 20050201, end: 20050407
  2. NORVASC [Concomitant]
     Route: 048
  3. SOLOMET [Concomitant]
     Route: 048
  4. FOSAMAX [Concomitant]
     Route: 048
  5. MIACALCIN [Concomitant]
     Route: 055
  6. VISCOTEARS [Concomitant]
     Route: 047
  7. CALCICHEW-D3 [Concomitant]
     Route: 048

REACTIONS (2)
  - HEPATITIS A ANTIBODY POSITIVE [None]
  - HEPATITIS CHOLESTATIC [None]
